FAERS Safety Report 20834171 (Version 1)
Quarter: 2022Q2

REPORT INFORMATION
  Report Type: Spontaneous
  Country: US (occurrence: None)
  Receive Date: 20220514
  Receipt Date: 20220514
  Transmission Date: 20220720
  Serious: Yes (unspecified)
  Sender: FDA-Public Use
  Company Number: None

PATIENT
  Age: 47 Year
  Sex: Female

DRUGS (2)
  1. SUMATRIPTAN [Suspect]
     Active Substance: SUMATRIPTAN
     Indication: Migraine
     Dosage: OTHER QUANTITY : 1 TABLET(S);?OTHER FREQUENCY : AS NEEDED;?
     Route: 048
     Dates: start: 20200120, end: 20210311
  2. VITAMINS [Concomitant]
     Active Substance: VITAMINS

REACTIONS (10)
  - Palpitations [None]
  - Asthenia [None]
  - Fatigue [None]
  - Feeling abnormal [None]
  - Inflammation [None]
  - Musculoskeletal stiffness [None]
  - Pain in extremity [None]
  - Hypertension [None]
  - Nausea [None]
  - Abdominal pain upper [None]

NARRATIVE: CASE EVENT DATE: 20210312
